FAERS Safety Report 18722501 (Version 2)
Quarter: 2021Q1

REPORT INFORMATION
  Report Type: Spontaneous
  Country: US (occurrence: US)
  Receive Date: 20210111
  Receipt Date: 20210330
  Transmission Date: 20210419
  Serious: Yes (Hospitalization, Other)
  Sender: FDA-Public Use
  Company Number: US-DRREDDYS-USA/USA/21/0130954

PATIENT
  Age: 68 Year
  Sex: Female

DRUGS (2)
  1. AMIODARONE HYDROCHLORIDE. [Suspect]
     Active Substance: AMIODARONE HYDROCHLORIDE
     Indication: ATRIAL FIBRILLATION
     Route: 051
  2. AMIODARONE HYDROCHLORIDE. [Suspect]
     Active Substance: AMIODARONE HYDROCHLORIDE
     Dosage: CONTINUOUS INFUSION (450MG/250ML) WAS STARTED AT 1 MG/MIN FOR 6 HOURS FOLLOWED BY 0.5 MG/MIN FOR NEW
     Route: 051

REACTIONS (2)
  - Acute hepatic failure [Unknown]
  - Drug interaction [Unknown]
